FAERS Safety Report 8317199-7 (Version None)
Quarter: 2012Q2

REPORT INFORMATION
  Report Type: 
  Country: None (occurrence: None)
  Receive Date: 20120427
  Receipt Date: 20120418
  Transmission Date: 20120825
  Serious: Yes (Other)
  Sender: FDA-Public Use
  Company Number: PHHY2012FR033461

PATIENT
  Age: 31 Year
  Sex: Male

DRUGS (1)
  1. RITALIN [Suspect]
     Dosage: 120 MG, DAILY (10 TO 30 MG EVERY 4 HOURS)
     Route: 042

REACTIONS (9)
  - INTENTIONAL DRUG MISUSE [None]
  - DEPRESSED MOOD [None]
  - EUPHORIC MOOD [None]
  - HYPERVIGILANCE [None]
  - ANXIETY DISORDER [None]
  - DRUG TOLERANCE [None]
  - PARANOIA [None]
  - DELUSION [None]
  - DISCOMFORT [None]
